FAERS Safety Report 8310058-5 (Version None)
Quarter: 2012Q2

REPORT INFORMATION
  Report Type: 
  Country: None (occurrence: None)
  Receive Date: 20120425
  Receipt Date: 20120418
  Transmission Date: 20120825
  Serious: Yes (Other)
  Sender: FDA-Public Use
  Company Number: DE-SANOFI-AVENTIS-2012SA027081

PATIENT
  Sex: Female

DRUGS (2)
  1. ARAVA [Suspect]
     Indication: RHEUMATOID ARTHRITIS
     Dosage: DOSAGE UNKNOWN
     Route: 048
     Dates: end: 20100127
  2. VITEX AGNUS CASTUS [Concomitant]
     Indication: MENSTRUATION IRREGULAR
     Dosage: DOSAGE UNKNOWN
     Route: 048
     Dates: end: 20100127

REACTIONS (2)
  - MATERNAL EXPOSURE DURING PREGNANCY [None]
  - ABORTION MISSED [None]
